FAERS Safety Report 15598104 (Version 2)
Quarter: 2018Q4

REPORT INFORMATION
  Report Type: Other
  Country: FR (occurrence: FR)
  Receive Date: 20181108
  Receipt Date: 20181206
  Transmission Date: 20190205
  Serious: Yes (Hospitalization, Other)
  Sender: FDA-Public Use
  Company Number: FR-ASPEN-GLO2018FR011289

PATIENT
  Age: 77 Year
  Sex: Female

DRUGS (3)
  1. BUSULFAN. [Suspect]
     Active Substance: BUSULFAN
     Indication: ESSENTIAL THROMBOCYTHAEMIA
     Dosage: UNK
     Route: 042
     Dates: start: 201404, end: 201406
  2. INTERFERON [Suspect]
     Active Substance: INTERFERON
     Indication: ESSENTIAL THROMBOCYTHAEMIA
     Dosage: INCONNUE
     Route: 058
  3. HYDREA [Suspect]
     Active Substance: HYDROXYUREA
     Indication: ESSENTIAL THROMBOCYTHAEMIA
     Dosage: UNK
     Route: 048

REACTIONS (1)
  - Lung neoplasm malignant [Not Recovered/Not Resolved]

NARRATIVE: CASE EVENT DATE: 201803
